FAERS Safety Report 4467762-9 (Version None)
Quarter: 2004Q4

REPORT INFORMATION
  Report Type: 
  Country: None (occurrence: None)
  Receive Date: 20041001
  Receipt Date: 20040914
  Transmission Date: 20050328
  Serious: Yes (Disabling)
  Sender: FDA-Public Use
  Company Number: 29409

PATIENT
  Age: 59 Year
  Sex: Male

DRUGS (4)
  1. PHENYLEPHRINE 2.5% [Suspect]
     Indication: FUNDOSCOPY
     Dosage: 1 GTT ONCE OPHT
     Route: 047
  2. TROPICAMIDE [Concomitant]
  3. INSULIN [Concomitant]
  4. LISINOPRIL [Concomitant]

REACTIONS (3)
  - OPTIC DISC DISORDER [None]
  - VISUAL DISTURBANCE [None]
  - VISUAL FIELD DEFECT [None]
